FAERS Safety Report 10429304 (Version 1)
Quarter: 2014Q3

REPORT INFORMATION
  Report Type: Spontaneous
  Country: US (occurrence: US)
  Receive Date: 20140904
  Receipt Date: 20140904
  Transmission Date: 20150326
  Serious: Yes (Life-Threatening, Hospitalization, Other)
  Sender: FDA-Public Use
  Company Number: US-JNJFOC-20140900771

PATIENT

DRUGS (3)
  1. DUEXIS [Suspect]
     Active Substance: FAMOTIDINE\IBUPROFEN
     Indication: OSTEOARTHRITIS
     Dosage: IBUPROFEN 800MG/ FAMOTIDINE 26.6MG DOSE FOR 24 CONSECUTIVE DAYS
     Route: 065
  2. IBUPROFEN. [Suspect]
     Active Substance: IBUPROFEN
     Indication: OSTEOARTHRITIS
     Dosage: FOR 24 CONSECUTIVE WEEKS
     Route: 065
  3. ASPIRIN. [Suspect]
     Active Substance: ASPIRIN
     Indication: OSTEOARTHRITIS
     Dosage: A DOSE OF GREATER THAN OR EQUAL TO 325 MG DAILY
     Route: 065

REACTIONS (6)
  - Heart rate irregular [Unknown]
  - Cardio-respiratory arrest [Unknown]
  - Hypertension [Unknown]
  - Coronary artery disease [Unknown]
  - Gastrointestinal ulcer [Unknown]
  - Congestive cardiomyopathy [Unknown]
